FAERS Safety Report 4650305-4 (Version None)
Quarter: 2005Q2

REPORT INFORMATION
  Report Type: 
  Country: None (occurrence: None)
  Receive Date: 20050428
  Receipt Date: 20050414
  Transmission Date: 20051028
  Serious: Yes (Hospitalization)
  Sender: FDA-Public Use
  Company Number: 2005BI006076

PATIENT
  Age: 46 Year
  Sex: Male
  Weight: 90.7194 kg

DRUGS (10)
  1. AVONEX [Suspect]
     Indication: MULTIPLE SCLEROSIS
     Dosage: 30 UG; QW; IM
     Route: 030
     Dates: start: 20020330, end: 20040101
  2. AVONEX [Suspect]
     Indication: MULTIPLE SCLEROSIS
     Dosage: 30 UG; QW; IM
     Route: 030
     Dates: start: 20040101
  3. LIPITOR [Concomitant]
  4. ACTOS [Concomitant]
  5. PERCOCET [Concomitant]
  6. GLUCOPHAGE [Concomitant]
  7. INSULIN [Concomitant]
  8. PHENERGAN [Concomitant]
  9. PROZAC [Concomitant]
  10. NEURONTIN [Concomitant]

REACTIONS (11)
  - DIABETES MELLITUS INADEQUATE CONTROL [None]
  - DISEASE RECURRENCE [None]
  - DYSPHAGIA [None]
  - FAECAL INCONTINENCE [None]
  - FATIGUE [None]
  - LEUKOCYTOSIS [None]
  - LOSS OF CONTROL OF LEGS [None]
  - LUNG INFILTRATION [None]
  - MULTIPLE SCLEROSIS [None]
  - PNEUMONIA [None]
  - URINARY INCONTINENCE [None]
